FAERS Safety Report 7710257-7 (Version None)
Quarter: 2011Q3

REPORT INFORMATION
  Report Type: 
  Country: None (occurrence: None)
  Receive Date: 20110825
  Receipt Date: 20110727
  Transmission Date: 20111222
  Serious: Yes (Other)
  Sender: FDA-Public Use
  Company Number: CA-JNJFOC-20110809500

PATIENT
  Sex: Female
  Weight: 48.31 kg

DRUGS (1)
  1. REMICADE [Suspect]
     Indication: RHEUMATOID ARTHRITIS
     Route: 042
     Dates: start: 20110613, end: 20110818

REACTIONS (3)
  - BLOOD PRESSURE INCREASED [None]
  - ARTHRALGIA [None]
  - MALAISE [None]
